FAERS Safety Report 13593976 (Version 2)
Quarter: 2017Q3

REPORT INFORMATION
  Report Type: Report from Study
  Country: US (occurrence: US)
  Receive Date: 20170530
  Receipt Date: 20170919
  Transmission Date: 20171127
  Serious: Yes (Other)
  Sender: FDA-Public Use
  Company Number: PHEH2017US016223

PATIENT

DRUGS (1)
  1. ILARIS [Suspect]
     Active Substance: CANAKINUMAB
     Indication: STILL^S DISEASE
     Dosage: 150 MG, EVERY 28 DAYS
     Route: 058

REACTIONS (3)
  - Inappropriate schedule of drug administration [Unknown]
  - Still^s disease [Unknown]
  - Condition aggravated [Unknown]
